FAERS Safety Report 14285643 (Version 1)
Quarter: 2017Q4

REPORT INFORMATION
  Report Type: Spontaneous
  Country: BE (occurrence: BE)
  Receive Date: 20171214
  Receipt Date: 20171214
  Transmission Date: 20180321
  Serious: Yes (Other)
  Sender: FDA-Public Use
  Company Number: BE-ACTELION-A-CH2017-164116

PATIENT
  Age: 50 Year
  Sex: Female

DRUGS (8)
  1. POTASSIUM [Concomitant]
     Active Substance: POTASSIUM
  2. SILDENAFIL. [Concomitant]
     Active Substance: SILDENAFIL
     Indication: PULMONARY ARTERIAL HYPERTENSION
     Route: 048
  3. EPOPROSTENOL SODIUM. [Suspect]
     Active Substance: EPOPROSTENOL SODIUM
     Indication: PULMONARY ARTERIAL HYPERTENSION
     Route: 065
  4. PROLIA [Suspect]
     Active Substance: DENOSUMAB
     Indication: OSTEOPOROSIS
     Dosage: 60 MG, Q6MO
     Route: 065
  5. VITAMIN D [Concomitant]
     Active Substance: CHOLECALCIFEROL
     Indication: OSTEOPOROSIS
     Dosage: 25000 IU, QMO
  6. CALCIUM CARBONATE. [Concomitant]
     Active Substance: CALCIUM CARBONATE
     Indication: OSTEOPOROSIS
     Dosage: 1.250 MG, QD
  7. IRON [Concomitant]
     Active Substance: IRON
  8. PANTOPRAZOLE [Concomitant]
     Active Substance: PANTOPRAZOLE
     Dosage: 40 MG, QD

REACTIONS (7)
  - Hypocalcaemia [Recovered/Resolved]
  - Osteomalacia [Unknown]
  - Malabsorption [Unknown]
  - Hypophosphataemia [Recovered/Resolved]
  - Hyperparathyroidism secondary [Unknown]
  - Pain in jaw [Recovered/Resolved]
  - Paraesthesia [Recovered/Resolved]
